FAERS Safety Report 6752169-1 (Version None)
Quarter: 2010Q2

REPORT INFORMATION
  Report Type: 
  Country: None (occurrence: None)
  Receive Date: 20100602
  Receipt Date: 20100322
  Transmission Date: 20101027
  Serious: Yes (Hospitalization, Other)
  Sender: FDA-Public Use
  Company Number: US-BAYER-200938601NA

PATIENT
  Age: 37 Year
  Sex: Female
  Weight: 78 kg

DRUGS (10)
  1. YAZ [Suspect]
     Indication: CONTRACEPTION
     Route: 048
     Dates: start: 20070525, end: 20071101
  2. YASMIN [Suspect]
     Indication: DRUG USE FOR UNKNOWN INDICATION
     Route: 048
  3. PERMETHRIN [Concomitant]
     Dosage: APPLY TO AFFECTED AREA TWICE DAILY AS NEEDED
     Route: 061
  4. CIPROFLOXACIN HCL [Concomitant]
     Dosage: TOTAL DAILY DOSE: 1000 MG  UNIT DOSE: 500 MG
  5. IBUPROFEN [Concomitant]
     Indication: PAIN
     Dosage: 600MG 1 TABLET EVERY 6 HOURS AS NEEDED
  6. OXYCODONE ACETAMINOPHEN 5 [Concomitant]
     Indication: PAIN
  7. PREDNISONE [Concomitant]
     Dosage: TOTAL DAILY DOSE: 30 MG  UNIT DOSE: 10 MG
  8. PREDNISONE [Concomitant]
     Dosage: TOTAL DAILY DOSE: 10 MG  UNIT DOSE: 10 MG
  9. PREDNISONE [Concomitant]
     Dosage: TOTAL DAILY DOSE: 20 MG  UNIT DOSE: 10 MG
  10. TRIAMCINOLONE ACETONIDE [Concomitant]
     Dosage: APPLY TO AFFECTED AREA 3 TIMES DAILY AS NEEDED
     Route: 061

REACTIONS (7)
  - ABDOMINAL PAIN [None]
  - BILIARY COLIC [None]
  - CHEST PAIN [None]
  - CHOLELITHIASIS [None]
  - DEFAECATION URGENCY [None]
  - DYSPNOEA [None]
  - NAUSEA [None]
